FAERS Safety Report 12186226 (Version 3)
Quarter: 2016Q2

REPORT INFORMATION
  Report Type: Spontaneous
  Country: BR (occurrence: BR)
  Receive Date: 20160317
  Receipt Date: 20160504
  Transmission Date: 20160815
  Serious: Yes (Death, Hospitalization)
  Sender: FDA-Public Use
  Company Number: BR-PFIZER INC-2016147594

PATIENT
  Age: 45 Year
  Sex: Female

DRUGS (1)
  1. SUTENT [Suspect]
     Active Substance: SUNITINIB MALATE
     Indication: GASTROINTESTINAL STROMAL TUMOUR
     Dosage: 50 MG, CYCLE 2 X 1
     Route: 048
     Dates: start: 20160220

REACTIONS (9)
  - Disease progression [Fatal]
  - Asthenia [Unknown]
  - Mouth injury [Unknown]
  - Asthenia [Unknown]
  - Feeling hot [Unknown]
  - Nausea [Unknown]
  - Gastrointestinal stromal tumour [Fatal]
  - Feeding disorder [Unknown]
  - Erythema [Unknown]

NARRATIVE: CASE EVENT DATE: 2016
